FAERS Safety Report 25487169 (Version 2)
Quarter: 2025Q3

REPORT INFORMATION
  Report Type: Report from Study
  Country: US (occurrence: US)
  Receive Date: 20250627
  Receipt Date: 20250715
  Transmission Date: 20251020
  Serious: Yes (Disabling)
  Sender: AMGEN
  Company Number: US-AMGEN-USASP2025123243

PATIENT
  Age: 74 Year
  Sex: Male

DRUGS (4)
  1. REPATHA [Suspect]
     Active Substance: EVOLOCUMAB
     Indication: Blood cholesterol abnormal
     Route: 065
  2. REPATHA [Suspect]
     Active Substance: EVOLOCUMAB
     Route: 065
  3. PERCOCET [Concomitant]
     Active Substance: ACETAMINOPHEN\OXYCODONE HYDROCHLORIDE
     Indication: Arthritis
     Dosage: 10 MILLIGRAM, BID
     Route: 065
  4. NEXLIZET [Concomitant]
     Active Substance: BEMPEDOIC ACID\EZETIMIBE
     Indication: Blood cholesterol abnormal
     Route: 065

REACTIONS (4)
  - Gait disturbance [Not Recovered/Not Resolved]
  - Device difficult to use [Unknown]
  - Product administration error [Unknown]
  - Pain in extremity [Not Recovered/Not Resolved]

NARRATIVE: CASE EVENT DATE: 20250601
